FAERS Safety Report 14491692 (Version 1)
Quarter: 2018Q1

REPORT INFORMATION
  Report Type: Spontaneous
  Country: NL (occurrence: NL)
  Receive Date: 20180206
  Receipt Date: 20180206
  Transmission Date: 20180509
  Serious: Yes (Hospitalization)
  Sender: FDA-Public Use
  Company Number: NL-B.I. PHARMACEUTICALS,INC./RIDGEFIELD-2018-12-000300

PATIENT
  Age: 36 Year
  Sex: Female

DRUGS (1)
  1. VIRAMUNE [Suspect]
     Active Substance: NEVIRAPINE
     Indication: HIV INFECTION
     Route: 065

REACTIONS (19)
  - Mucosa vesicle [Recovering/Resolving]
  - Lip pain [Recovering/Resolving]
  - Conjunctival ulcer [Recovering/Resolving]
  - Headache [Recovering/Resolving]
  - Photophobia [Recovering/Resolving]
  - Lip erosion [Recovering/Resolving]
  - Rash macular [Recovering/Resolving]
  - Vaginal erosion [Recovering/Resolving]
  - Rash [Recovering/Resolving]
  - White blood cell count decreased [Recovering/Resolving]
  - Conjunctival hyperaemia [Recovering/Resolving]
  - Pyrexia [Recovering/Resolving]
  - Mucosal erosion [Recovering/Resolving]
  - Eyelid erosion [Recovering/Resolving]
  - Stevens-Johnson syndrome [Recovering/Resolving]
  - Herpes virus infection [Recovering/Resolving]
  - C-reactive protein increased [Recovering/Resolving]
  - Epidermal necrosis [Recovering/Resolving]
  - Eye pain [Recovering/Resolving]
